FAERS Safety Report 15738524 (Version 1)
Quarter: 2018Q4

REPORT INFORMATION
  Report Type: Spontaneous
  Country: US (occurrence: US)
  Receive Date: 20181219
  Receipt Date: 20181219
  Transmission Date: 20190205
  Serious: No
  Sender: FDA-Public Use
  Company Number: US-PFIZER INC-2018519146

PATIENT
  Age: 43 Year
  Sex: Female

DRUGS (3)
  1. DEHIST [Suspect]
     Active Substance: CHLORPHENIRAMINE\PHENYLPROPANOLAMINE
     Dosage: UNK
  2. LINCOCIN [Suspect]
     Active Substance: LINCOMYCIN
     Dosage: UNK
  3. KEFLEX [Suspect]
     Active Substance: CEPHALEXIN
     Dosage: UNK

REACTIONS (1)
  - Drug hypersensitivity [Unknown]
